FAERS Safety Report 7789766-0 (Version None)
Quarter: 2011Q3

REPORT INFORMATION
  Report Type: 
  Country: None (occurrence: None)
  Receive Date: 20110930
  Receipt Date: 20110517
  Transmission Date: 20111222
  Serious: No
  Sender: FDA-Public Use
  Company Number: US-ASTRAZENECA-2011SE30099

PATIENT
  Age: 47 Year
  Sex: Female
  Weight: 86.2 kg

DRUGS (2)
  1. ARIMIDEX [Suspect]
     Indication: BREAST CANCER
     Route: 048
     Dates: start: 20101215, end: 20110201
  2. ARIMIDEX [Suspect]
     Route: 048
     Dates: start: 20110201, end: 20110319

REACTIONS (6)
  - GAIT DISTURBANCE [None]
  - PAIN IN EXTREMITY [None]
  - LIMB INJURY [None]
  - CARPAL TUNNEL SYNDROME [None]
  - ARTHRALGIA [None]
  - HYPOAESTHESIA [None]
